FAERS Safety Report 10485327 (Version 2)
Quarter: 2014Q4

REPORT INFORMATION
  Report Type: Spontaneous
  Country: US (occurrence: US)
  Receive Date: 20140930
  Receipt Date: 20141110
  Transmission Date: 20150528
  Serious: Yes (Other)
  Sender: FDA-Public Use
  Company Number: US-B.I. PHARMACEUTICALS,INC./RIDGEFIELD-2014-BI-45862BP

PATIENT
  Age: 82 Year
  Sex: Female

DRUGS (3)
  1. LIPITOR [Concomitant]
     Active Substance: ATORVASTATIN CALCIUM
     Indication: BLOOD CHOLESTEROL INCREASED
     Dosage: 10 MG
     Route: 048
     Dates: start: 2004
  2. DULCOLAX TABLETS FOR WOMEN [Suspect]
     Active Substance: BISACODYL
     Indication: CONSTIPATION
     Route: 048
  3. EVISTA [Concomitant]
     Active Substance: RALOXIFENE HYDROCHLORIDE
     Indication: PROPHYLAXIS
     Dosage: 60 MG
     Route: 048
     Dates: start: 2002

REACTIONS (5)
  - Product quality issue [Unknown]
  - Cardiac failure congestive [Not Recovered/Not Resolved]
  - Abdominal pain upper [Recovered/Resolved]
  - Hypertension [Not Recovered/Not Resolved]
  - Visual impairment [Not Recovered/Not Resolved]

NARRATIVE: CASE EVENT DATE: 2014
